FAERS Safety Report 5206891-9 (Version None)
Quarter: 2006Q4

REPORT INFORMATION
  Report Type: 
  Country: None (occurrence: None)
  Receive Date: 20061030
  Receipt Date: 20060714
  Transmission Date: 20070319
  Serious: No
  Sender: FDA-Public Use
  Company Number: 255089

PATIENT
  Age: 53 Year
  Sex: Female
  Weight: 95.2 kg

DRUGS (6)
  1. LEVEMIR [Suspect]
     Indication: INSULIN-REQUIRING TYPE II DIABETES MELLITUS
     Dosage: 20 IU, QD, SUBCUTANEOUS
     Route: 058
     Dates: start: 20060701
  2. AVANDIA [Concomitant]
  3. GLUCOPHAGE (METFORMIN) TABLET [Concomitant]
  4. AMARYL [Concomitant]
  5. DOVAN (METAMIZOLE SODIUM) [Concomitant]
  6. NEXIUM [Concomitant]

REACTIONS (1)
  - RASH PRURITIC [None]
